FAERS Safety Report 7427903-8 (Version None)
Quarter: 2011Q2

REPORT INFORMATION
  Report Type: 
  Country: None (occurrence: None)
  Receive Date: 20110421
  Receipt Date: 20110412
  Transmission Date: 20111010
  Serious: Yes (Other)
  Sender: FDA-Public Use
  Company Number: CA-US-EMD SERONO, INC.-230151J10CAN

PATIENT
  Sex: Female

DRUGS (2)
  1. REBIF [Suspect]
     Indication: RELAPSING-REMITTING MULTIPLE SCLEROSIS
     Dates: start: 20091117
  2. GABAPENTIN [Concomitant]

REACTIONS (9)
  - CENTRAL NERVOUS SYSTEM LESION [None]
  - GAIT DISTURBANCE [None]
  - MULTIPLE SCLEROSIS RELAPSE [None]
  - CHOLECYSTECTOMY [None]
  - MEMORY IMPAIRMENT [None]
  - FATIGUE [None]
  - HYPOTHYROIDISM [None]
  - BLOOD PRESSURE INCREASED [None]
  - IMPAIRED WORK ABILITY [None]
